FAERS Safety Report 17929749 (Version 5)
Quarter: 2023Q2

REPORT INFORMATION
  Report Type: Spontaneous
  Country: US (occurrence: US)
  Receive Date: 20200623
  Receipt Date: 20230412
  Transmission Date: 20230721
  Serious: No
  Sender: FDA-Public Use
  Company Number: US-PFIZER INC-2020241730

PATIENT
  Age: 78 Year
  Sex: Female
  Weight: 86.621 kg

DRUGS (2)
  1. IBRANCE [Suspect]
     Active Substance: PALBOCICLIB
     Indication: Breast cancer female
     Dosage: 125 MG
  2. IBRANCE [Suspect]
     Active Substance: PALBOCICLIB
     Indication: B-cell lymphoma
     Dosage: 100 MG

REACTIONS (4)
  - Arthritis [Unknown]
  - Neoplasm progression [Unknown]
  - Osteoarthritis [Unknown]
  - Off label use [Unknown]
